FAERS Safety Report 26136519 (Version 3)
Quarter: 2025Q4

REPORT INFORMATION
  Report Type: Report from Study
  Country: US (occurrence: US)
  Receive Date: 20251209
  Receipt Date: 20251211
  Transmission Date: 20260118
  Serious: No
  Sender: NOVARTIS
  Company Number: US-002147023-NVSC2025US187060

PATIENT
  Age: 51 Year
  Sex: Female

DRUGS (1)
  1. KESIMPTA [Suspect]
     Active Substance: OFATUMUMAB
     Indication: Multiple sclerosis
     Dosage: 20 MG, QW (ABDOMEN)
     Route: 050
     Dates: start: 20251202

REACTIONS (8)
  - Device leakage [Unknown]
  - Influenza like illness [Unknown]
  - Headache [Recovered/Resolved]
  - Nasopharyngitis [Unknown]
  - Product administration interrupted [Unknown]
  - Accidental exposure to product [Unknown]
  - Incorrect dose administered by device [Unknown]
  - Device malfunction [Unknown]

NARRATIVE: CASE EVENT DATE: 20251202
